FAERS Safety Report 15527677 (Version 3)
Quarter: 2019Q1

REPORT INFORMATION
  Report Type: Report from Study
  Country: US (occurrence: US)
  Receive Date: 20181018
  Receipt Date: 20190111
  Transmission Date: 20190417
  Serious: Yes (Other)
  Sender: FDA-Public Use
  Company Number: US-TESARO, INC-US-2018TSO03678

PATIENT
  Sex: Female

DRUGS (2)
  1. ZEJULA [Suspect]
     Active Substance: NIRAPARIB
     Indication: MALIGNANT PERITONEAL NEOPLASM
     Dosage: 100 MG, TID
     Route: 048
     Dates: start: 20171115
  2. ZEJULA [Suspect]
     Active Substance: NIRAPARIB
     Dosage: 300 MG, QD, PM WITHOUT FOOD
     Route: 048
     Dates: start: 2018

REACTIONS (6)
  - Abdominal discomfort [Unknown]
  - Carbohydrate antigen 125 increased [Not Recovered/Not Resolved]
  - Inappropriate schedule of product administration [Unknown]
  - Diverticulitis [Unknown]
  - Neoplasm progression [Not Recovered/Not Resolved]
  - Abdominal pain upper [Unknown]
